FAERS Safety Report 15387708 (Version 1)
Quarter: 2018Q3

REPORT INFORMATION
  Report Type: Spontaneous
  Country: GB (occurrence: GB)
  Receive Date: 20180914
  Receipt Date: 20180914
  Transmission Date: 20181010
  Serious: Yes (Other)
  Sender: FDA-Public Use
  Company Number: GB-BAUSCH-BL-2018-025241

PATIENT
  Age: 13 Year
  Sex: Male

DRUGS (10)
  1. IMMUNOGLOBULIN I.V [Suspect]
     Active Substance: HUMAN IMMUNOGLOBULIN G
     Indication: CHRONIC LYMPHOCYTIC INFLAMMATION WITH PONTINE PERIVASCULAR ENHANCEMENT RESPONSIVE TO STEROIDS
     Route: 042
  2. PREDNISOLONE. [Suspect]
     Active Substance: PREDNISOLONE
     Indication: CHRONIC LYMPHOCYTIC INFLAMMATION WITH PONTINE PERIVASCULAR ENHANCEMENT RESPONSIVE TO STEROIDS
     Route: 048
  3. MYCOPHENOLATE MOFETIL. [Suspect]
     Active Substance: MYCOPHENOLATE MOFETIL
     Indication: PRODUCT USE IN UNAPPROVED INDICATION
  4. PREDNISOLONE. [Suspect]
     Active Substance: PREDNISOLONE
     Indication: PRODUCT USE IN UNAPPROVED INDICATION
  5. INFLIXIMAB [Suspect]
     Active Substance: INFLIXIMAB
     Indication: CHRONIC LYMPHOCYTIC INFLAMMATION WITH PONTINE PERIVASCULAR ENHANCEMENT RESPONSIVE TO STEROIDS
     Route: 065
  6. IMMUNOGLOBULIN I.V [Suspect]
     Active Substance: HUMAN IMMUNOGLOBULIN G
     Indication: PRODUCT USE IN UNAPPROVED INDICATION
  7. INFLIXIMAB [Suspect]
     Active Substance: INFLIXIMAB
     Indication: PRODUCT USE IN UNAPPROVED INDICATION
  8. METHYLPREDNISOLONE. [Suspect]
     Active Substance: METHYLPREDNISOLONE
     Indication: CHRONIC LYMPHOCYTIC INFLAMMATION WITH PONTINE PERIVASCULAR ENHANCEMENT RESPONSIVE TO STEROIDS
     Route: 042
  9. METHYLPREDNISOLONE. [Suspect]
     Active Substance: METHYLPREDNISOLONE
     Indication: PRODUCT USE IN UNAPPROVED INDICATION
  10. MYCOPHENOLATE MOFETIL. [Suspect]
     Active Substance: MYCOPHENOLATE MOFETIL
     Indication: CHRONIC LYMPHOCYTIC INFLAMMATION WITH PONTINE PERIVASCULAR ENHANCEMENT RESPONSIVE TO STEROIDS
     Route: 065

REACTIONS (9)
  - Chronic lymphocytic inflammation with pontine perivascular enhancement responsive to steroids [Unknown]
  - Ataxia [Unknown]
  - Bulbar palsy [Unknown]
  - Disease recurrence [Unknown]
  - Product use in unapproved indication [Unknown]
  - Urinary incontinence [Unknown]
  - Hemiplegia [Unknown]
  - Abnormal behaviour [Unknown]
  - Lethargy [Unknown]
